FAERS Safety Report 7403522-4 (Version None)
Quarter: 2011Q2

REPORT INFORMATION
  Report Type: 
  Country: None (occurrence: None)
  Receive Date: 20110408
  Receipt Date: 20110405
  Transmission Date: 20111010
  Serious: Yes (Hospitalization)
  Sender: FDA-Public Use
  Company Number: DK-MERCK-1008DNK00001

PATIENT
  Sex: Male

DRUGS (3)
  1. ZOCOR [Suspect]
     Indication: HYPERCHOLESTEROLAEMIA
     Route: 048
     Dates: start: 20090818, end: 20090929
  2. CYCLOSPORINE [Suspect]
     Route: 048
     Dates: start: 20091027, end: 20100112
  3. CYCLOSPORINE [Suspect]
     Indication: APLASTIC ANAEMIA
     Route: 048
     Dates: start: 20090807, end: 20090929

REACTIONS (3)
  - MYOPATHY [None]
  - HEPATOTOXICITY [None]
  - DRUG INTERACTION [None]
